FAERS Safety Report 5905340-2 (Version None)
Quarter: 2008Q4

REPORT INFORMATION
  Report Type: 
  Country: None (occurrence: None)
  Receive Date: 20081001
  Receipt Date: 20080828
  Transmission Date: 20090506
  Serious: Yes (Hospitalization)
  Sender: FDA-Public Use
  Company Number: ES-B.I. PHARMACEUTICALS,INC./RIDGEFIELD-2008-DE-05777BY

PATIENT
  Sex: Male

DRUGS (10)
  1. TELMISARTAN [Suspect]
     Indication: ESSENTIAL HYPERTENSION
     Dosage: 80MG
     Route: 048
     Dates: start: 20080716
  2. NIFEDIPINE [Suspect]
     Indication: ESSENTIAL HYPERTENSION
     Dosage: 20MG
     Route: 048
     Dates: start: 20080716
  3. NIFEDIPINE OR PLACEBO [Suspect]
     Indication: ESSENTIAL HYPERTENSION
     Dosage: 20MG
     Route: 048
     Dates: start: 20080314, end: 20080715
  4. TELMISARTAN OR PLACEBO [Suspect]
     Indication: ESSENTIAL HYPERTENSION
     Dosage: 80MG
     Route: 048
     Dates: start: 20080314, end: 20080715
  5. HIDROCLOROTIAZIDA [Concomitant]
     Indication: HYPERTENSION
     Dosage: 12.5MG
     Route: 048
     Dates: start: 20080201
  6. OMEPRAZOLE [Concomitant]
     Indication: PROPHYLAXIS
     Dosage: 20MG
     Route: 048
     Dates: start: 19930101
  7. MYOLASTAN [Concomitant]
     Indication: INTERVERTEBRAL DISC DISORDER
     Dosage: 100MG
     Route: 048
     Dates: start: 20080201
  8. LYRICA [Concomitant]
     Indication: INTERVERTEBRAL DISC DISORDER
     Dosage: 150MG
     Route: 048
     Dates: start: 20080301
  9. ZALDIAR [Concomitant]
     Indication: INTERVERTEBRAL DISC DISORDER
     Dosage: 362.5MG
     Route: 048
     Dates: start: 20080301
  10. NOLOTIL [Concomitant]
     Indication: INTERVERTEBRAL DISC DISORDER
     Dosage: 1725MG
     Route: 048
     Dates: start: 20080201

REACTIONS (1)
  - ISCHAEMIC CEREBRAL INFARCTION [None]
